FAERS Safety Report 6373117-2 (Version None)
Quarter: 2009Q3

REPORT INFORMATION
  Report Type: 
  Country: None (occurrence: None)
  Receive Date: 20090924
  Receipt Date: 20090316
  Transmission Date: 20100115
  Serious: No
  Sender: FDA-Public Use
  Company Number: US-ASTRAZENECA-2009UW03420

PATIENT
  Age: 42 Year
  Sex: Female

DRUGS (1)
  1. SEROQUEL [Suspect]
     Route: 048

REACTIONS (7)
  - BLOOD PRESSURE INCREASED [None]
  - HYPERHIDROSIS [None]
  - MALAISE [None]
  - RETCHING [None]
  - STRESS [None]
  - TACHYPHRENIA [None]
  - WEIGHT INCREASED [None]
